FAERS Safety Report 13890362 (Version 1)
Quarter: 2017Q3

REPORT INFORMATION
  Report Type: Report from Study
  Country: DE (occurrence: DE)
  Receive Date: 20170822
  Receipt Date: 20170822
  Transmission Date: 20171127
  Serious: Yes (Other)
  Sender: FDA-Public Use
  Company Number: DE-ROCHE-1921425

PATIENT

DRUGS (5)
  1. ASPIRIN. [Concomitant]
     Active Substance: ASPIRIN
     Dosage: MAINTENANCE DOSE OF ASPIRIN WAS 100 TO 250 MG ONCE DAILY.
     Route: 048
  2. HEPARIN [Concomitant]
     Active Substance: HEPARIN SODIUM
     Route: 040
  3. ALTEPLASE. [Suspect]
     Active Substance: ALTEPLASE
     Indication: ACUTE MYOCARDIAL INFARCTION
     Route: 040
  4. ASPIRIN. [Concomitant]
     Active Substance: ASPIRIN
     Route: 048
  5. HEPARIN [Concomitant]
     Active Substance: HEPARIN SODIUM
     Route: 042

REACTIONS (2)
  - Haemorrhage [Unknown]
  - Retroperitoneal haemorrhage [Unknown]
